FAERS Safety Report 8004605-0 (Version None)
Quarter: 2011Q4

REPORT INFORMATION
  Report Type: 
  Country: None (occurrence: None)
  Receive Date: 20111223
  Receipt Date: 20111213
  Transmission Date: 20120403
  Serious: Yes (Disabling)
  Sender: FDA-Public Use
  Company Number: GB-PERRIGO-11GB010933

PATIENT
  Age: 62 Year
  Sex: Male
  Weight: 103 kg

DRUGS (14)
  1. ATENOLOL [Concomitant]
     Indication: PRODUCT USED FOR UNKNOWN INDICATION
     Dosage: UNK
     Route: 065
     Dates: start: 20111008, end: 20111105
  2. ALLOPURINOL [Concomitant]
     Dosage: UNK
     Route: 065
     Dates: start: 20110813, end: 20110910
  3. NICORANDIL [Concomitant]
     Dosage: UNK
     Route: 065
     Dates: start: 20110813, end: 20110910
  4. CANDESARTAN CILEXETIL [Concomitant]
     Indication: PRODUCT USED FOR UNKNOWN INDICATION
     Dosage: UNK
     Route: 065
     Dates: start: 20111008, end: 20111105
  5. NAPROXEN SODIUM [Suspect]
     Indication: INTERMITTENT CLAUDICATION
     Dosage: UNK
     Route: 065
  6. CINCHOCAINE [Concomitant]
     Indication: PRODUCT USED FOR UNKNOWN INDICATION
     Dosage: UNK
     Route: 065
     Dates: start: 20110826, end: 20111101
  7. FUROSEMIDE [Concomitant]
     Dosage: UNK
     Route: 065
     Dates: start: 20110813, end: 20110910
  8. NICORANDIL [Concomitant]
     Indication: PRODUCT USED FOR UNKNOWN INDICATION
     Dosage: UNK
     Route: 065
     Dates: start: 20111008, end: 20111105
  9. ATORVASTATIN [Concomitant]
     Indication: PRODUCT USED FOR UNKNOWN INDICATION
     Dosage: UNK
     Route: 065
     Dates: start: 20111008, end: 20111105
  10. ALLOPURINOL [Concomitant]
     Indication: PRODUCT USED FOR UNKNOWN INDICATION
     Dosage: UNK
     Route: 065
     Dates: start: 20111008, end: 20111105
  11. ATENOLOL [Concomitant]
     Dosage: UNK
     Route: 065
     Dates: start: 20110813, end: 20110910
  12. ATORVASTATIN [Concomitant]
     Dosage: UNK
     Route: 065
     Dates: start: 20110813, end: 20110910
  13. CANDESARTAN CILEXETIL [Concomitant]
     Dosage: UNK
     Route: 065
     Dates: start: 20110813, end: 20110910
  14. FUROSEMIDE [Concomitant]
     Indication: PRODUCT USED FOR UNKNOWN INDICATION
     Dosage: UNK
     Route: 065
     Dates: start: 20111008, end: 20111105

REACTIONS (1)
  - MYALGIA [None]
